FAERS Safety Report 10158428 (Version 3)
Quarter: 2014Q2

REPORT INFORMATION
  Report Type: Report from Study
  Country: CA (occurrence: CA)
  Receive Date: 20140507
  Receipt Date: 20140603
  Transmission Date: 20141212
  Serious: Yes (Hospitalization, Other)
  Sender: FDA-Public Use
  Company Number: PHHY2014CA055395

PATIENT
  Sex: Female

DRUGS (2)
  1. CLOZARIL [Suspect]
     Indication: SCHIZOPHRENIA
     Route: 048
     Dates: start: 20090223
  2. AVELOX [Concomitant]

REACTIONS (4)
  - Epiglottitis [Recovered/Resolved]
  - Intestinal obstruction [Unknown]
  - Subileus [Unknown]
  - Pneumonia [Unknown]
